FAERS Safety Report 16647319 (Version 1)
Quarter: 2019Q3

REPORT INFORMATION
  Report Type: Spontaneous
  Country: US (occurrence: US)
  Receive Date: 20190730
  Receipt Date: 20190730
  Transmission Date: 20191004
  Serious: No
  Sender: FDA-Public Use
  Company Number: US-PFIZER INC-2018354138

PATIENT
  Sex: Male

DRUGS (2)
  1. NALBUPHINE HYDROCHLORIDE. [Suspect]
     Active Substance: NALBUPHINE HYDROCHLORIDE
     Indication: MULTIPLE SCLEROSIS
     Dosage: UNK (10/1 MG/ML)
  2. NALBUPHINE HYDROCHLORIDE. [Suspect]
     Active Substance: NALBUPHINE HYDROCHLORIDE
     Indication: EYE DISORDER

REACTIONS (2)
  - Drug effective for unapproved indication [Unknown]
  - Intentional product misuse [Unknown]
